FAERS Safety Report 6828353-5 (Version None)
Quarter: 2010Q3

REPORT INFORMATION
  Report Type: 
  Country: None (occurrence: None)
  Receive Date: 20100708
  Receipt Date: 20100708
  Transmission Date: 20110219
  Serious: Yes (Hospitalization)
  Sender: FDA-Public Use
  Company Number: None

PATIENT
  Age: 70 Year
  Sex: Male

DRUGS (3)
  1. ALIMTA [Suspect]
     Dosage: 1100 MG IV
     Route: 042
     Dates: start: 20100429
  2. ETOPOSIDE [Concomitant]
  3. CARBOPLATIN [Concomitant]

REACTIONS (2)
  - PANCYTOPENIA [None]
  - PULMONARY EMBOLISM [None]
